FAERS Safety Report 19246809 (Version 1)
Quarter: 2021Q2

REPORT INFORMATION
  Report Type: Spontaneous
  Country: FR (occurrence: FR)
  Receive Date: 20210512
  Receipt Date: 20210512
  Transmission Date: 20210717
  Serious: Yes (Hospitalization)
  Sender: FDA-Public Use
  Company Number: FR-SA-2021SA157399

PATIENT
  Age: 91 Year
  Sex: Female

DRUGS (6)
  1. OXYCONTIN [Concomitant]
     Active Substance: OXYCODONE HYDROCHLORIDE
     Indication: FRACTURE PAIN
     Dosage: 5 MG
     Route: 048
     Dates: start: 20210319
  2. IOMERON [Suspect]
     Active Substance: IOMEPROL
     Indication: COMPUTERISED TOMOGRAM THORAX
     Dosage: UNK
     Route: 042
     Dates: start: 20210402, end: 20210402
  3. CEFOTAXIME SODIUM [Suspect]
     Active Substance: CEFOTAXIME SODIUM
     Indication: LUNG DISORDER
     Dosage: 1 G
     Route: 030
     Dates: start: 20210322, end: 20210327
  4. LOVENOX [Suspect]
     Active Substance: ENOXAPARIN SODIUM
     Indication: THROMBOSIS PROPHYLAXIS
     Dosage: 1 DF
     Route: 058
     Dates: start: 20210319, end: 20210406
  5. DEXAMETHASONE. [Concomitant]
     Active Substance: DEXAMETHASONE
     Indication: COVID-19 TREATMENT
     Dosage: 6 MG
     Route: 030
     Dates: start: 20210319
  6. INNOHEP [Concomitant]
     Active Substance: TINZAPARIN SODIUM
     Indication: THROMBOSIS PROPHYLAXIS
     Dosage: 12000 IU
     Route: 058
     Dates: start: 20210322, end: 20210326

REACTIONS (1)
  - Rash maculo-papular [Recovered/Resolved]

NARRATIVE: CASE EVENT DATE: 2021
